FAERS Safety Report 18700507 (Version 1)
Quarter: 2021Q1

REPORT INFORMATION
  Report Type: Report from Study
  Country: None (occurrence: US)
  Receive Date: 20210105
  Receipt Date: 20210105
  Transmission Date: 20210419
  Serious: Yes (Other)
  Sender: FDA-Public Use
  Company Number: US-BIOVITRUM-2020US5129

PATIENT
  Age: 59 Year
  Sex: Male

DRUGS (1)
  1. KINERET [Suspect]
     Active Substance: ANAKINRA
     Indication: STILL^S DISEASE
     Route: 058
     Dates: start: 20190518

REACTIONS (4)
  - Product dose omission issue [Unknown]
  - Off label use [Unknown]
  - Hypertension [Unknown]
  - Lyme disease [Unknown]

NARRATIVE: CASE EVENT DATE: 20190518
